FAERS Safety Report 11060084 (Version 1)
Quarter: 2015Q2

REPORT INFORMATION
  Report Type: Spontaneous
  Country: US (occurrence: US)
  Receive Date: 20150423
  Receipt Date: 20150423
  Transmission Date: 20150821
  Serious: Yes (Other)
  Sender: FDA-Public Use
  Company Number: US-APOTEX-2015AP008230

PATIENT
  Sex: Female

DRUGS (1)
  1. FENTANYL TRANSDERMAL SYSTEM [Suspect]
     Active Substance: FENTANYL
     Indication: SCIATICA
     Dosage: 50 ?G, UNK
     Route: 062

REACTIONS (7)
  - Tremor [Recovering/Resolving]
  - Palpitations [Recovering/Resolving]
  - Product substitution issue [Recovering/Resolving]
  - Dyspnoea [Recovering/Resolving]
  - Suicidal ideation [Recovering/Resolving]
  - Feeling abnormal [Recovering/Resolving]
  - Gait disturbance [Recovered/Resolved]
